FAERS Safety Report 7933091-1 (Version None)
Quarter: 2011Q4

REPORT INFORMATION
  Report Type: 
  Country: None (occurrence: None)
  Receive Date: 20111122
  Receipt Date: 20110823
  Transmission Date: 20120403
  Serious: No
  Sender: FDA-Public Use
  Company Number: US-BAYER-2011-080166

PATIENT
  Age: 73 Year
  Sex: Male
  Weight: 79.365 kg

DRUGS (3)
  1. ALEVE (CAPLET) [Suspect]
     Indication: PAIN
     Dosage: 2 DF, BID
  2. ANTIHYPERTENSIVES [Concomitant]
  3. ACID REFLUX MEDICATION [Concomitant]

REACTIONS (4)
  - ABDOMINAL DISCOMFORT [None]
  - THROAT IRRITATION [None]
  - FOREIGN BODY [None]
  - PAIN [None]
